FAERS Safety Report 16390306 (Version 1)
Quarter: 2019Q2

REPORT INFORMATION
  Report Type: Report from Study
  Country: UG (occurrence: UG)
  Receive Date: 20190604
  Receipt Date: 20190604
  Transmission Date: 20190711
  Serious: Yes (Death, Life-Threatening, Other)
  Sender: FDA-Public Use
  Company Number: UG-VIIV HEALTHCARE LIMITED-UG2018GSK159993

PATIENT
  Sex: Male

DRUGS (4)
  1. LAMIVUDINE + TENOFOVIR DISOPROXIL FUMARATE [Concomitant]
     Active Substance: LAMIVUDINE\TENOFOVIR DISOPROXIL FUMARATE
     Indication: HIV INFECTION
  2. COTRIMOXAZOLE [Concomitant]
     Active Substance: SULFAMETHOXAZOLE\TRIMETHOPRIM
     Dosage: 960 MG, QD
     Dates: start: 20180628
  3. DOLUTEGRAVIR [Suspect]
     Active Substance: DOLUTEGRAVIR
     Indication: HIV INFECTION
     Dosage: 50 MG, QD
     Route: 064
     Dates: start: 20180628, end: 20180831
  4. FEFOL [Concomitant]
     Active Substance: FERROUS SULFATE\FOLIC ACID
     Dosage: 1 DF, QD
     Dates: start: 20180628

REACTIONS (1)
  - Foetal distress syndrome [Fatal]

NARRATIVE: CASE EVENT DATE: 20180831
